FAERS Safety Report 8369104-5 (Version None)
Quarter: 2012Q2

REPORT INFORMATION
  Report Type: 
  Country: None (occurrence: None)
  Receive Date: 20120516
  Receipt Date: 20120516
  Transmission Date: 20120825
  Serious: Yes (Life-Threatening)
  Sender: FDA-Public Use
  Company Number: None

PATIENT
  Age: 49 Year
  Sex: Female
  Weight: 106.5953 kg

DRUGS (1)
  1. PROVIGIL [Suspect]
     Indication: NARCOLEPSY
     Dosage: 250MG DAILY PO
     Route: 048
     Dates: start: 20120506, end: 20120510

REACTIONS (14)
  - BIPOLAR I DISORDER [None]
  - PAIN IN EXTREMITY [None]
  - TONGUE BLISTERING [None]
  - DRUG HYPERSENSITIVITY [None]
  - ABDOMINAL PAIN UPPER [None]
  - ORAL MUCOSAL BLISTERING [None]
  - ORAL MUCOSAL EXFOLIATION [None]
  - MALAISE [None]
  - LIP BLISTER [None]
  - GINGIVAL BLISTER [None]
  - TOOTHACHE [None]
  - DYSPHAGIA [None]
  - ORAL PAIN [None]
  - VOMITING [None]
